FAERS Safety Report 14832067 (Version 1)
Quarter: 2018Q2

REPORT INFORMATION
  Report Type: Spontaneous
  Country: US (occurrence: US)
  Receive Date: 20180410
  Receipt Date: 20180410
  Transmission Date: 20180711
  Serious: Yes (Other)
  Sender: FDA-Public Use
  Company Number: None

PATIENT
  Age: 68 Year
  Sex: Male
  Weight: 95.4 kg

DRUGS (12)
  1. IRBESARTAN. [Concomitant]
     Active Substance: IRBESARTAN
  2. ROSUVASTATIN. [Concomitant]
     Active Substance: ROSUVASTATIN
  3. MEGA MEN VITAMINS [Concomitant]
  4. CLONAZEPAM. [Concomitant]
     Active Substance: CLONAZEPAM
  5. AMLODIPINE [Concomitant]
     Active Substance: AMLODIPINE BESYLATE
  6. LEVAQUIN [Suspect]
     Active Substance: LEVOFLOXACIN
     Indication: PNEUMONIA
     Route: 048
     Dates: start: 20180404, end: 20180406
  7. VITAMIN D [Concomitant]
     Active Substance: CHOLECALCIFEROL
  8. ALEVE [Concomitant]
     Active Substance: NAPROXEN SODIUM
  9. ADVAIR HFA [Concomitant]
     Active Substance: FLUTICASONE PROPIONATE\SALMETEROL XINAFOATE
  10. FISH OIL [Concomitant]
     Active Substance: FISH OIL
  11. VITAMIN C [Concomitant]
     Active Substance: ASCORBIC ACID
  12. FLONASE [Concomitant]
     Active Substance: FLUTICASONE PROPIONATE

REACTIONS (5)
  - Tendon disorder [None]
  - Tendon pain [None]
  - Pain [None]
  - Temporomandibular joint syndrome [None]
  - Swelling [None]

NARRATIVE: CASE EVENT DATE: 20180406
